FAERS Safety Report 13018358 (Version 2)
Quarter: 2016Q4

REPORT INFORMATION
  Report Type: Spontaneous
  Country: US (occurrence: US)
  Receive Date: 20161212
  Receipt Date: 20161212
  Transmission Date: 20170207
  Serious: Yes (Other)
  Sender: FDA-Public Use
  Company Number: US-ELI_LILLY_AND_COMPANY-US201607010527

PATIENT
  Age: 32 Year

DRUGS (3)
  1. BUPROPION. [Suspect]
     Active Substance: BUPROPION
     Indication: PRODUCT USED FOR UNKNOWN INDICATION
     Dosage: UNK, UNKNOWN
     Route: 065
     Dates: end: 20151019
  2. CYMBALTA [Suspect]
     Active Substance: DULOXETINE HYDROCHLORIDE
     Indication: PRODUCT USED FOR UNKNOWN INDICATION
     Dosage: 30 MG, UNKNOWN
     Route: 065
  3. CYMBALTA [Suspect]
     Active Substance: DULOXETINE HYDROCHLORIDE
     Dosage: 60 MG, UNKNOWN
     Route: 065
     Dates: end: 20151006

REACTIONS (21)
  - Dysphoria [Unknown]
  - Diarrhoea [Unknown]
  - Vertigo [Unknown]
  - Confusional state [Unknown]
  - Stress [Unknown]
  - Dizziness [Unknown]
  - Urticaria [Recovered/Resolved]
  - Depression [Unknown]
  - Agitation [Unknown]
  - Lethargy [Unknown]
  - Drug withdrawal syndrome [Unknown]
  - Sensory disturbance [Unknown]
  - Insomnia [Unknown]
  - Hypomania [Unknown]
  - Tremor [Unknown]
  - Suicidal ideation [Unknown]
  - Vomiting [Unknown]
  - Nausea [Unknown]
  - Irritability [Unknown]
  - Anxiety [Unknown]
  - Affect lability [Unknown]

NARRATIVE: CASE EVENT DATE: 201510
